FAERS Safety Report 15867308 (Version 2)
Quarter: 2019Q1

REPORT INFORMATION
  Report Type: Spontaneous
  Country: CN (occurrence: CN)
  Receive Date: 20190125
  Receipt Date: 20190322
  Transmission Date: 20190417
  Serious: Yes (Other)
  Sender: FDA-Public Use
  Company Number: CN-BAYER-2019-014591

PATIENT

DRUGS (2)
  1. BAYASPIRIN 100 MG [Suspect]
     Active Substance: ASPIRIN
     Dosage: 1 DF, QD
     Route: 048
     Dates: start: 2016, end: 201901
  2. BAYASPIRIN 100 MG [Suspect]
     Active Substance: ASPIRIN
     Dosage: UNK
     Route: 048

REACTIONS (7)
  - Erosive oesophagitis [None]
  - Gastric pH decreased [Not Recovered/Not Resolved]
  - Gastrooesophageal reflux disease [None]
  - Localised oedema [Not Recovered/Not Resolved]
  - Gastritis erosive [Recovered/Resolved]
  - Gastric haemorrhage [Recovered/Resolved]
  - Gastric ulcer [None]

NARRATIVE: CASE EVENT DATE: 2016
